FAERS Safety Report 12409055 (Version 1)
Quarter: 2016Q2

REPORT INFORMATION
  Report Type: Report from Study
  Country: BR (occurrence: BR)
  Receive Date: 20160526
  Receipt Date: 20160526
  Transmission Date: 20160815
  Serious: Yes (Other)
  Sender: FDA-Public Use
  Company Number: PHHY2015BR123680

PATIENT
  Sex: Female
  Weight: 74 kg

DRUGS (1)
  1. EXJADE [Suspect]
     Active Substance: DEFERASIROX
     Indication: SICKLE CELL ANAEMIA
     Dosage: 2 DF (15 MG/KG), QHS
     Route: 065

REACTIONS (4)
  - Diarrhoea [Unknown]
  - Malaise [Recovering/Resolving]
  - Visual acuity reduced [Unknown]
  - Glaucoma [Unknown]
